FAERS Safety Report 4308534-5 (Version None)
Quarter: 2004Q1

REPORT INFORMATION
  Report Type: 
  Country: None (occurrence: None)
  Receive Date: 20040225
  Receipt Date: 20030103
  Transmission Date: 20041129
  Serious: Yes (Disabling)
  Sender: FDA-Public Use
  Company Number: WAES 0301USA00385

PATIENT
  Age: 77 Year
  Sex: Female

DRUGS (6)
  1. ZOCOR [Suspect]
     Dosage: PO
     Route: 048
     Dates: start: 20020101, end: 20020101
  2. K-TAB [Concomitant]
  3. LANOXIN [Concomitant]
  4. PREMARIN [Concomitant]
  5. ALLOPURINOL [Concomitant]
  6. FUROSEMIDE [Concomitant]

REACTIONS (1)
  - MYALGIA [None]
